FAERS Safety Report 5650151-9 (Version None)
Quarter: 2008Q1

REPORT INFORMATION
  Report Type: 
  Country: None (occurrence: None)
  Receive Date: 20080131
  Receipt Date: 20071206
  Transmission Date: 20080703
  Serious: No
  Sender: FDA-Public Use
  Company Number: US200712001510

PATIENT
  Age: 67 Year
  Sex: Male

DRUGS (4)
  1. BYETTA [Suspect]
     Indication: CENTRAL OBESITY
     Dosage: SEE IMAGE
     Route: 058
     Dates: start: 20060101, end: 20060101
  2. BYETTA [Suspect]
     Indication: CENTRAL OBESITY
     Dosage: SEE IMAGE
     Route: 058
     Dates: start: 20070101, end: 20070101
  3. BYETTA [Suspect]
     Indication: CENTRAL OBESITY
     Dosage: SEE IMAGE
     Route: 058
     Dates: start: 20070901, end: 20070101
  4. BYETTA [Suspect]
     Indication: CENTRAL OBESITY
     Dosage: SEE IMAGE
     Route: 058
     Dates: start: 20071201

REACTIONS (3)
  - DECREASED APPETITE [None]
  - DRUG DOSE OMISSION [None]
  - WEIGHT DECREASED [None]
